FAERS Safety Report 7915880-2 (Version None)
Quarter: 2011Q4

REPORT INFORMATION
  Report Type: 
  Country: None (occurrence: None)
  Receive Date: 20111115
  Receipt Date: 20111109
  Transmission Date: 20120403
  Serious: Yes (Hospitalization, Other)
  Sender: FDA-Public Use
  Company Number: US-PFIZER INC-2011274762

PATIENT
  Sex: Female

DRUGS (4)
  1. CEREBYX [Suspect]
     Indication: CONVULSION
     Dosage: UNK
  2. FOSPHENYTOIN [Suspect]
     Indication: CONVULSION
     Dosage: UNK
     Dates: start: 20090915, end: 20090923
  3. TAMIFLU [Suspect]
     Dosage: UNK
  4. DILANTIN-125 [Suspect]
     Dosage: UNK

REACTIONS (8)
  - SKIN NECROSIS [None]
  - TOXIC EPIDERMAL NECROLYSIS [None]
  - BLISTER [None]
  - AMNESIA [None]
  - SCAR [None]
  - SOFT TISSUE NECROSIS [None]
  - STEVENS-JOHNSON SYNDROME [None]
  - FINGER AMPUTATION [None]
